FAERS Safety Report 8228053-3 (Version None)
Quarter: 2012Q1

REPORT INFORMATION
  Report Type: 
  Country: None (occurrence: None)
  Receive Date: 20120322
  Receipt Date: 20120110
  Transmission Date: 20120608
  Serious: Yes (Other)
  Sender: FDA-Public Use
  Company Number: US-BRISTOL-MYERS SQUIBB COMPANY-16342339

PATIENT
  Sex: Male

DRUGS (3)
  1. ERBITUX [Suspect]
     Dosage: LOADING DOSE INFUSION
  2. SOLU-MEDROL [Concomitant]
  3. BENADRYL [Concomitant]

REACTIONS (1)
  - INFUSION RELATED REACTION [None]
